FAERS Safety Report 5811667-5 (Version None)
Quarter: 2008Q3

REPORT INFORMATION
  Report Type: 
  Country: None (occurrence: None)
  Receive Date: 20080716
  Receipt Date: 20080703
  Transmission Date: 20090109
  Serious: Yes (Life-Threatening, Disabling, Congenital Anomaly, Other)
  Sender: FDA-Public Use
  Company Number: JP-ASTRAZENECA-2008SE03254

PATIENT
  Sex: Male
  Weight: 1 kg

DRUGS (4)
  1. BLOPRESS [Suspect]
     Indication: RENAL TRANSPLANT
     Route: 064
  2. MEDROL [Concomitant]
     Route: 064
  3. NEORAL [Concomitant]
     Route: 064
  4. AZANIN [Concomitant]
     Route: 064

REACTIONS (10)
  - CONVULSION [None]
  - FOETAL HEART RATE DECREASED [None]
  - JOINT CONTRACTURE [None]
  - NEONATAL HYPOTENSION [None]
  - NEPHROGENIC DIABETES INSIPIDUS [None]
  - OSTEOGENESIS IMPERFECTA [None]
  - PATENT DUCTUS ARTERIOSUS [None]
  - PSYCHOMOTOR SKILLS IMPAIRED [None]
  - PULMONARY HYPOPLASIA [None]
  - RENAL FAILURE NEONATAL [None]
